FAERS Safety Report 16296344 (Version 1)
Quarter: 2019Q2

REPORT INFORMATION
  Report Type: Spontaneous
  Country: US (occurrence: US)
  Receive Date: 20190509
  Receipt Date: 20190509
  Transmission Date: 20190711
  Serious: Yes (Disabling)
  Sender: FDA-Public Use
  Company Number: None

PATIENT
  Age: 56 Year
  Sex: Female
  Weight: 63 kg

DRUGS (6)
  1. TRIED MELOATONIN AND VALERIAN FOR INSOMNIA BUT THEY DON^T HELP SO STOPPED [Concomitant]
  2. HRT [Concomitant]
     Active Substance: UNSPECIFIED INGREDIENT
  3. NORDIC NATURAL FISH OILS [Concomitant]
  4. TERBINAFINE HCL 250 MG TABLET [Suspect]
     Active Substance: TERBINAFINE HYDROCHLORIDE
     Indication: ONYCHOMYCOSIS
     Dosage: ?          QUANTITY:1 TABLET(S);?
     Route: 048
     Dates: start: 20190312, end: 20190330
  5. CAL/MAG/ZINC [Concomitant]
  6. MULTIVITAMIN [Concomitant]
     Active Substance: VITAMINS

REACTIONS (11)
  - Psychomotor hyperactivity [None]
  - Chromaturia [None]
  - Decreased appetite [None]
  - Anxiety [None]
  - Product use complaint [None]
  - Weight decreased [None]
  - Fatigue [None]
  - Crying [None]
  - Abdominal pain upper [None]
  - Insomnia [None]
  - Drug ineffective [None]

NARRATIVE: CASE EVENT DATE: 20190312
